FAERS Safety Report 12944982 (Version 1)
Quarter: 2016Q4

REPORT INFORMATION
  Report Type: Spontaneous
  Country: US (occurrence: US)
  Receive Date: 20161115
  Receipt Date: 20161115
  Transmission Date: 20170207
  Serious: Yes (Other)
  Sender: FDA-Public Use
  Company Number: None

PATIENT
  Age: 62 Year
  Sex: Female

DRUGS (14)
  1. LANSOPRAZOLE. [Concomitant]
     Active Substance: LANSOPRAZOLE
  2. TIZANDINE [Concomitant]
     Active Substance: TIZANIDINE
  3. GILENYA [Suspect]
     Active Substance: FINGOLIMOD HYDROCHLORIDE
     Indication: MULTIPLE SCLEROSIS
     Route: 048
     Dates: start: 20161011, end: 20161114
  4. BENTYL [Concomitant]
     Active Substance: DICYCLOMINE HYDROCHLORIDE
  5. COPAXONE [Concomitant]
     Active Substance: GLATIRAMER ACETATE
  6. FLAXSEED [Concomitant]
     Active Substance: FLAX SEED
  7. VITAMIN D3 [Concomitant]
     Active Substance: CHOLECALCIFEROL
  8. BACLOFEN. [Concomitant]
     Active Substance: BACLOFEN
  9. CALCIUM GLUC [Concomitant]
  10. MYRBETRIQ [Concomitant]
     Active Substance: MIRABEGRON
  11. VITAMIN C [Concomitant]
     Active Substance: ASCORBIC ACID
  12. ESTRADIOL. [Concomitant]
     Active Substance: ESTRADIOL
  13. GLUCOSAMINE [Concomitant]
     Active Substance: GLUCOSAMINE
  14. NITROFURANTIN [Suspect]
     Active Substance: NITROFURANTOIN

REACTIONS (6)
  - Memory impairment [None]
  - Paraesthesia [None]
  - Chest pain [None]
  - Asthenia [None]
  - Headache [None]
  - Drug intolerance [None]

NARRATIVE: CASE EVENT DATE: 20161025
